FAERS Safety Report 16015559 (Version 1)
Quarter: 2019Q1

REPORT INFORMATION
  Report Type: Spontaneous
  Country: US (occurrence: US)
  Receive Date: 20190228
  Receipt Date: 20190228
  Transmission Date: 20190418
  Serious: Yes (Other)
  Sender: FDA-Public Use
  Company Number: US-009507513-1902USA010497

PATIENT
  Age: 36 Year
  Sex: Female

DRUGS (1)
  1. INTRON A [Suspect]
     Active Substance: INTERFERON ALFA-2B
     Dosage: STRENGTH: 25 MIU; 2 MILLION INTERNATIONAL UNIT
     Route: 058
     Dates: start: 201902

REACTIONS (2)
  - Maternal exposure during pregnancy [Unknown]
  - Myeloproliferative neoplasm [Unknown]

NARRATIVE: CASE EVENT DATE: 201902
